FAERS Safety Report 21412110 (Version 1)
Quarter: 2022Q4

REPORT INFORMATION
  Report Type: Spontaneous
  Country: US (occurrence: None)
  Receive Date: 20221004
  Receipt Date: 20221004
  Transmission Date: 20230113
  Serious: No
  Sender: FDA-Public Use
  Company Number: None

PATIENT
  Age: 83 Year
  Sex: Female
  Weight: 69.85 kg

DRUGS (12)
  1. IBRANCE [Suspect]
     Active Substance: PALBOCICLIB
     Indication: Breast cancer female
     Dosage: OTHER FREQUENCY : 3WON1WOFF;?
     Route: 048
     Dates: start: 20191221
  2. ASPIRIN [Concomitant]
  3. ATORVASTATIN [Concomitant]
  4. CALCIUM [Concomitant]
     Active Substance: CALCIUM
  5. CALCIUM CARBONATE-VITAMIN D [Concomitant]
  6. FEMARA [Concomitant]
     Active Substance: LETROZOLE
  7. LETROZOLE [Concomitant]
  8. LORATADINE [Concomitant]
  9. LOSARTAN [Concomitant]
  10. METOPROLOL [Concomitant]
     Active Substance: METOPROLOL
  11. POTASSIUM [Concomitant]
     Active Substance: POTASSIUM
  12. PROCHLORPERAZINE [Concomitant]

REACTIONS (1)
  - Full blood count decreased [None]
